FAERS Safety Report 9155803 (Version 3)
Quarter: 2013Q4

REPORT INFORMATION
  Report Type: Spontaneous
  Country: US (occurrence: US)
  Receive Date: 20130311
  Receipt Date: 20131022
  Transmission Date: 20140711
  Serious: Yes (Hospitalization, Other)
  Sender: FDA-Public Use
  Company Number: US-009507513-1303USA003911

PATIENT
  Sex: Female
  Weight: 67.12 kg

DRUGS (6)
  1. FOSAMAX [Suspect]
     Indication: OSTEOPOROSIS
     Dosage: 10 MG, UNK
     Route: 048
     Dates: start: 19981108, end: 20080206
  2. FOSAMAX [Suspect]
     Dosage: 70 MG, UNK
     Route: 048
     Dates: start: 19981108, end: 20080206
  3. FOSAMAX [Suspect]
     Dosage: UNK
     Route: 048
     Dates: end: 201010
  4. CALCIUM (UNSPECIFIED) [Concomitant]
     Dosage: 1200 MG, UNK
     Dates: start: 1998
  5. VITAMIN D (UNSPECIFIED) [Concomitant]
     Dosage: 800 MICROGRAM, UNK
     Dates: start: 1998
  6. MULTIVIT [Concomitant]
     Dosage: 1 DF, UNK
     Dates: start: 1998

REACTIONS (46)
  - Intramedullary rod insertion [Unknown]
  - Lobular breast carcinoma in situ [Unknown]
  - Spinal compression fracture [Unknown]
  - Rotator cuff repair [Unknown]
  - Cholecystectomy [Unknown]
  - Surgery [Unknown]
  - Femur fracture [Recovering/Resolving]
  - Vertebroplasty [Unknown]
  - Low turnover osteopathy [Unknown]
  - Hypertension [Unknown]
  - Stress fracture [Unknown]
  - Contusion [Unknown]
  - Intervertebral disc degeneration [Unknown]
  - Intervertebral disc protrusion [Unknown]
  - Spondylolisthesis [Unknown]
  - Lumbar spinal stenosis [Unknown]
  - Arthritis [Unknown]
  - Scoliosis [Unknown]
  - Dental caries [Unknown]
  - Meniscus injury [Unknown]
  - Osteoarthritis [Unknown]
  - Meniscus removal [Unknown]
  - Chondroplasty [Unknown]
  - Chronic obstructive pulmonary disease [Unknown]
  - Malignant breast lump removal [Unknown]
  - Breast cyst excision [Unknown]
  - Biopsy [Unknown]
  - Appendicectomy [Unknown]
  - Arthroscopy [Unknown]
  - Bronchitis [Unknown]
  - Pneumonia [Unknown]
  - Urinary tract infection [Unknown]
  - Mitral valve prolapse [Unknown]
  - Lung disorder [Unknown]
  - Wrist fracture [Unknown]
  - Device extrusion [Unknown]
  - Radiculopathy [Unknown]
  - Tuberculosis [Unknown]
  - Tremor [Unknown]
  - Gastric ulcer [Unknown]
  - Back pain [Unknown]
  - Arthralgia [Unknown]
  - Drug ineffective [Unknown]
  - Foot fracture [Recovering/Resolving]
  - Knee arthroplasty [Unknown]
  - Foot fracture [Recovered/Resolved]
